FAERS Safety Report 6042594-9 (Version None)
Quarter: 2009Q1

REPORT INFORMATION
  Report Type: 
  Country: None (occurrence: None)
  Receive Date: 20090119
  Receipt Date: 20090112
  Transmission Date: 20090719
  Serious: Yes (Other)
  Sender: FDA-Public Use
  Company Number: GB-JNJFOC-20090101772

PATIENT
  Age: 35 Year
  Sex: Female

DRUGS (5)
  1. TOPAMAX [Suspect]
     Indication: CONVULSION
     Route: 048
  2. DEXAMETHASONE [Interacting]
     Route: 065
  3. DEXAMETHASONE [Interacting]
     Indication: ADRENOGENITAL SYNDROME
     Route: 065
  4. FLUDROCORTISONE ACETATE [Interacting]
     Route: 065
  5. FLUDROCORTISONE ACETATE [Interacting]
     Indication: ADRENOGENITAL SYNDROME
     Route: 065

REACTIONS (2)
  - ADRENAL INSUFFICIENCY [None]
  - DRUG INTERACTION [None]
